FAERS Safety Report 13329214 (Version 1)
Quarter: 2017Q1

REPORT INFORMATION
  Report Type: Spontaneous
  Country: US (occurrence: US)
  Receive Date: 20170313
  Receipt Date: 20170313
  Transmission Date: 20170428
  Serious: No
  Sender: FDA-Public Use
  Company Number: None

PATIENT
  Age: 47 Year
  Sex: Female

DRUGS (1)
  1. COLGATE OPTIC WHITE HIGH IMPACT FLUORIDE [Suspect]
     Active Substance: SODIUM MONOFLUOROPHOSPHATE

REACTIONS (5)
  - Ageusia [None]
  - Paraesthesia oral [None]
  - Noninfective gingivitis [None]
  - Dysgeusia [None]
  - Oral contusion [None]

NARRATIVE: CASE EVENT DATE: 20161226
